FAERS Safety Report 6040223-1 (Version None)
Quarter: 2009Q1

REPORT INFORMATION
  Report Type: 
  Country: None (occurrence: None)
  Receive Date: 20090116
  Receipt Date: 20080117
  Transmission Date: 20090719
  Serious: No
  Sender: FDA-Public Use
  Company Number: US-BRISTOL-MYERS SQUIBB COMPANY-14045504

PATIENT
  Age: 47 Year
  Sex: Female
  Weight: 65 kg

DRUGS (2)
  1. ABILIFY [Suspect]
     Indication: BIPOLAR DISORDER
     Dosage: ON 15JAN08 AND 16JAN08 SHE TOOK THE DOSE IN THE EVENING
     Route: 048
     Dates: start: 20080113
  2. CYMBALTA [Concomitant]

REACTIONS (2)
  - FATIGUE [None]
  - SOMNOLENCE [None]
